FAERS Safety Report 14471489 (Version 2)
Quarter: 2018Q1

REPORT INFORMATION
  Report Type: Spontaneous
  Country: FR (occurrence: FR)
  Receive Date: 20180131
  Receipt Date: 20180220
  Transmission Date: 20180509
  Serious: Yes (Hospitalization, Other)
  Sender: FDA-Public Use
  Company Number: FR-PFIZER INC-2018035831

PATIENT
  Age: 41 Year
  Sex: Male
  Weight: 85 kg

DRUGS (4)
  1. RHINADVIL [Suspect]
     Active Substance: IBUPROFEN\PSEUDOEPHEDRINE HYDROCHLORIDE
     Dosage: 6 DF, SINGLE
     Dates: start: 20171012, end: 20171012
  2. SERESTA [Suspect]
     Active Substance: OXAZEPAM
     Dosage: 10 MG, 3X/DAY
     Dates: start: 20170825
  3. SERESTA [Suspect]
     Active Substance: OXAZEPAM
     Dosage: 15 DF, SINGLE
     Dates: start: 20171012, end: 20171012
  4. CHAMPIX [Suspect]
     Active Substance: VARENICLINE TARTRATE
     Indication: SMOKING CESSATION THERAPY
     Dosage: UNK
     Route: 048
     Dates: start: 20171012, end: 20171012

REACTIONS (3)
  - Suicidal ideation [Recovered/Resolved]
  - Irritability [Recovered/Resolved]
  - Intentional overdose [Unknown]

NARRATIVE: CASE EVENT DATE: 20171012
